FAERS Safety Report 4507053-0 (Version None)
Quarter: 2004Q4

REPORT INFORMATION
  Report Type: 
  Country: None (occurrence: None)
  Receive Date: 20041104
  Receipt Date: 20041102
  Transmission Date: 20050328
  Serious: Yes (Hospitalization)
  Sender: FDA-Public Use
  Company Number: E2004-02442

PATIENT
  Age: 26 Year
  Sex: Male

DRUGS (2)
  1. TOLLWUTGLOBULIN MERIEUX P (PASTEURIZED HUMAN RABIES IMMUNOGLOBULIN), A [Suspect]
     Indication: ANIMAL BITE
     Dosage: WPIMD
     Dates: start: 20040727
  2. RABIPUR, CHIRON BEHRING [Concomitant]

REACTIONS (4)
  - ANAPHYLACTIC REACTION [None]
  - CHEST DISCOMFORT [None]
  - FEELING HOT [None]
  - PARAESTHESIA [None]
